FAERS Safety Report 5769683-8 (Version None)
Quarter: 2008Q2

REPORT INFORMATION
  Report Type: 
  Country: None (occurrence: None)
  Receive Date: 20080612
  Receipt Date: 20080402
  Transmission Date: 20081010
  Serious: No
  Sender: FDA-Public Use
  Company Number: US-ABBOTT-08P-163-0445759-00

PATIENT
  Sex: Female
  Weight: 67.192 kg

DRUGS (2)
  1. HUMIRA [Suspect]
     Indication: PSORIASIS
     Route: 058
     Dates: start: 20080305
  2. EUGYNON [Concomitant]
     Indication: CONTRACEPTION
     Route: 048
     Dates: start: 20060101

REACTIONS (2)
  - EYE PRURITUS [None]
  - EYE SWELLING [None]
